FAERS Safety Report 13569116 (Version 1)
Quarter: 2017Q2

REPORT INFORMATION
  Report Type: Spontaneous
  Country: FR (occurrence: FR)
  Receive Date: 20170522
  Receipt Date: 20170522
  Transmission Date: 20170830
  Serious: Yes (Other)
  Sender: FDA-Public Use
  Company Number: FR-NOVOPROD-540954

PATIENT
  Age: 52 Year
  Sex: Male
  Weight: 61 kg

DRUGS (2)
  1. NOVORAPID [Suspect]
     Active Substance: INSULIN ASPART
     Indication: TYPE 1 DIABETES MELLITUS
     Dosage: 30 U, QD
     Route: 058
     Dates: start: 20170401, end: 20170403
  2. NOVORAPID [Suspect]
     Active Substance: INSULIN ASPART
     Dosage: 30 U, QD
     Route: 058

REACTIONS (1)
  - Diabetic metabolic decompensation [Recovered/Resolved]

NARRATIVE: CASE EVENT DATE: 20170401
